FAERS Safety Report 8521168-1 (Version None)
Quarter: 2012Q3

REPORT INFORMATION
  Report Type: 
  Country: None (occurrence: None)
  Receive Date: 20120719
  Receipt Date: 20120710
  Transmission Date: 20120928
  Serious: Yes (Other)
  Sender: FDA-Public Use
  Company Number: US-ELI_LILLY_AND_COMPANY-US201204008541

PATIENT
  Sex: Female

DRUGS (1)
  1. FORTEO [Suspect]
     Indication: OSTEOPOROSIS
     Dosage: UNK
     Dates: start: 20120301

REACTIONS (8)
  - DECREASED APPETITE [None]
  - PRURITUS [None]
  - HEART RATE INCREASED [None]
  - DIZZINESS [None]
  - NAUSEA [None]
  - FATIGUE [None]
  - KNEE ARTHROPLASTY [None]
  - HEADACHE [None]
